FAERS Safety Report 7782481-9 (Version None)
Quarter: 2011Q3

REPORT INFORMATION
  Report Type: 
  Country: None (occurrence: None)
  Receive Date: 20110928
  Receipt Date: 20110919
  Transmission Date: 20111222
  Serious: Yes (Hospitalization)
  Sender: FDA-Public Use
  Company Number: 2008BI011231

PATIENT
  Age: 42 Year
  Sex: Female
  Weight: 45 kg

DRUGS (4)
  1. TYLENOL-500 [Concomitant]
     Indication: PREMEDICATION
  2. IBUPROFEN (ADVIL) [Concomitant]
     Indication: PREMEDICATION
  3. AVONEX [Suspect]
     Indication: MULTIPLE SCLEROSIS
     Route: 030
     Dates: start: 20080125, end: 20080413
  4. AVONEX [Suspect]
     Route: 030
     Dates: start: 20080413, end: 20080502

REACTIONS (12)
  - MULTIPLE SCLEROSIS RELAPSE [None]
  - HYPOAESTHESIA [None]
  - VITAMIN D DECREASED [None]
  - DIZZINESS [None]
  - MUSCLE SPASMS [None]
  - INFLUENZA LIKE ILLNESS [None]
  - VOMITING [None]
  - MULTIPLE SCLEROSIS [None]
  - URINARY INCONTINENCE [None]
  - NAUSEA [None]
  - FEELING HOT [None]
  - IMMUNE SYSTEM DISORDER [None]
